FAERS Safety Report 17908034 (Version 1)
Quarter: 2020Q2

REPORT INFORMATION
  Report Type: Spontaneous
  Country: US (occurrence: US)
  Receive Date: 20200617
  Receipt Date: 20200617
  Transmission Date: 20200714
  Serious: No
  Sender: FDA-Public Use
  Company Number: US-SA-2020SA152886

PATIENT

DRUGS (1)
  1. FERRLECIT [Suspect]
     Active Substance: SODIUM FERRIC GLUCONATE COMPLEX

REACTIONS (7)
  - Pain [Unknown]
  - Paraesthesia [Unknown]
  - Abdominal pain upper [Unknown]
  - Abdominal pain [Unknown]
  - Hypoaesthesia [Unknown]
  - Nausea [Unknown]
  - Hyperhidrosis [Unknown]
